FAERS Safety Report 14875537 (Version 1)
Quarter: 2018Q2

REPORT INFORMATION
  Report Type: Spontaneous
  Country: GB (occurrence: GB)
  Receive Date: 20180510
  Receipt Date: 20180510
  Transmission Date: 20180711
  Serious: Yes (Other)
  Sender: FDA-Public Use
  Company Number: GB-JNJFOC-20180506164

PATIENT

DRUGS (1)
  1. ITRACONAZOLE. [Suspect]
     Active Substance: ITRACONAZOLE
     Indication: BRONCHOPULMONARY ASPERGILLOSIS
     Route: 065

REACTIONS (16)
  - Neuropathy peripheral [Unknown]
  - Asthenia [Unknown]
  - Visual impairment [Unknown]
  - Dyspnoea [Unknown]
  - Alopecia [Unknown]
  - Confusional state [Unknown]
  - Hepatotoxicity [Unknown]
  - Gastrointestinal disorder [Unknown]
  - Cardiotoxicity [Unknown]
  - Amnesia [Unknown]
  - Headache [Unknown]
  - Fatigue [Unknown]
  - Rhabdomyolysis [Unknown]
  - Loss of libido [Unknown]
  - Joint swelling [Unknown]
  - Photosensitivity reaction [Unknown]
